FAERS Safety Report 13151370 (Version 1)
Quarter: 2017Q1

REPORT INFORMATION
  Report Type: Spontaneous
  Country: US (occurrence: US)
  Receive Date: 20170125
  Receipt Date: 20170125
  Transmission Date: 20170428
  Serious: Yes (Disabling)
  Sender: FDA-Public Use
  Company Number: None

PATIENT
  Age: 79 Year
  Sex: Female
  Weight: 65.32 kg

DRUGS (5)
  1. CELEBREX [Suspect]
     Active Substance: CELECOXIB
     Indication: SPINAL PAIN
     Dosage: ?          QUANTITY:T7 XIV/R1771;?
     Route: 048
     Dates: start: 20140905, end: 20141101
  2. ANACIN NOS [Concomitant]
     Active Substance: ACETAMINOPHEN OR ACETAMINOPHEN\ASPIRIN\CAFFEINE OR ASPIRIN\CAFFEINE
  3. LATANOPROST (XALATAN) [Concomitant]
  4. VITAMIN D3 [Concomitant]
     Active Substance: CHOLECALCIFEROL
  5. ADVIL [Concomitant]
     Active Substance: IBUPROFEN

REACTIONS (4)
  - Intervertebral disc protrusion [None]
  - Weight loss diet [None]
  - Nerve compression [None]
  - Abdominal distension [None]

NARRATIVE: CASE EVENT DATE: 201410
